FAERS Safety Report 16736851 (Version 2)
Quarter: 2020Q2

REPORT INFORMATION
  Report Type: Other
  Country: US (occurrence: US)
  Receive Date: 20190823
  Receipt Date: 20200428
  Transmission Date: 20200713
  Serious: Yes (Hospitalization, Other)
  Sender: FDA-Public Use
  Company Number: US-AMAG PHARMACEUTICALS, INC.-AMAG201904406

PATIENT
  Age: 29 Year
  Sex: Female
  Weight: 95.34 kg

DRUGS (1)
  1. MAKENA [Suspect]
     Active Substance: HYDROXYPROGESTERONE CAPROATE
     Indication: PREMATURE DELIVERY
     Dosage: 250 MG/ML, WEEKLY
     Route: 058
     Dates: end: 20190717

REACTIONS (2)
  - Induced labour [Recovered/Resolved]
  - Premature delivery [Recovered/Resolved with Sequelae]

NARRATIVE: CASE EVENT DATE: 20190807
